FAERS Safety Report 24607300 (Version 9)
Quarter: 2025Q2

REPORT INFORMATION
  Report Type: Spontaneous
  Country: CA (occurrence: CA)
  Receive Date: 20241112
  Receipt Date: 20250516
  Transmission Date: 20250716
  Serious: Yes (Other)
  Sender: CELLTRION
  Company Number: CA-PFIZER INC-202400220744

PATIENT

DRUGS (11)
  1. INFLECTRA [Interacting]
     Active Substance: INFLIXIMAB-DYYB
     Indication: Crohn^s disease
     Route: 042
     Dates: start: 20240729
  2. INFLECTRA [Interacting]
     Active Substance: INFLIXIMAB-DYYB
     Route: 042
     Dates: start: 20240812
  3. INFLECTRA [Interacting]
     Active Substance: INFLIXIMAB-DYYB
     Route: 042
     Dates: start: 20240909
  4. INFLECTRA [Interacting]
     Active Substance: INFLIXIMAB-DYYB
     Route: 042
     Dates: start: 20241104
  5. INFLECTRA [Interacting]
     Active Substance: INFLIXIMAB-DYYB
     Route: 042
     Dates: start: 20250106
  6. INFLECTRA [Interacting]
     Active Substance: INFLIXIMAB-DYYB
     Route: 042
     Dates: start: 20250217
  7. INFLECTRA [Interacting]
     Active Substance: INFLIXIMAB-DYYB
     Route: 042
     Dates: start: 20250328
  8. INFLECTRA [Interacting]
     Active Substance: INFLIXIMAB-DYYB
     Route: 042
     Dates: start: 20250328
  9. INFLECTRA [Interacting]
     Active Substance: INFLIXIMAB-DYYB
     Route: 042
     Dates: start: 20250508
  10. PREDNISONE [Interacting]
     Active Substance: PREDNISONE
     Dates: start: 202406
  11. PROCTOL [Concomitant]
     Dates: start: 20240718

REACTIONS (21)
  - Hypertension [Recovering/Resolving]
  - Drug interaction [Recovering/Resolving]
  - Migraine [Recovered/Resolved]
  - Vomiting [Recovered/Resolved]
  - Headache [Recovering/Resolving]
  - Erythema [Unknown]
  - Feeling hot [Unknown]
  - Heart rate increased [Recovering/Resolving]
  - Palpitations [Unknown]
  - Nasopharyngitis [Recovered/Resolved]
  - Oropharyngeal pain [Unknown]
  - Condition aggravated [Not Recovered/Not Resolved]
  - Arthralgia [Recovered/Resolved]
  - Stress [Unknown]
  - Nausea [Unknown]
  - Poor quality sleep [Unknown]
  - Disturbance in attention [Unknown]
  - Fatigue [Not Recovered/Not Resolved]
  - Off label use [Unknown]
  - Off label use [Unknown]
  - Incorrect dose administered [Unknown]

NARRATIVE: CASE EVENT DATE: 20240101
